FAERS Safety Report 17762388 (Version 1)
Quarter: 2020Q2

REPORT INFORMATION
  Report Type: Spontaneous
  Country: PL (occurrence: PL)
  Receive Date: 20200508
  Receipt Date: 20200508
  Transmission Date: 20200714
  Serious: Yes (Other)
  Sender: FDA-Public Use
  Company Number: NVSC2020PL123929

PATIENT
  Sex: Female

DRUGS (2)
  1. SANDOSTATIN LAR DEPOT [Suspect]
     Active Substance: OCTREOTIDE ACETATE
     Dosage: 30 MG, 28D
     Route: 065
  2. SANDOSTATIN LAR DEPOT [Suspect]
     Active Substance: OCTREOTIDE ACETATE
     Indication: NEUROENDOCRINE TUMOUR
     Dosage: 20 MG, 28D
     Route: 065
     Dates: start: 201512

REACTIONS (9)
  - Metastases to lymph nodes [Recovered/Resolved]
  - Blood chromogranin A increased [Unknown]
  - Metastases to liver [Recovered/Resolved]
  - Metastases to uterus [Unknown]
  - Mesenteric artery embolism [Recovered/Resolved]
  - Serum serotonin increased [Unknown]
  - Neoplasm progression [Recovered/Resolved]
  - Metastases to diaphragm [Recovered/Resolved]
  - Nodule [Recovered/Resolved]

NARRATIVE: CASE EVENT DATE: 201512
